FAERS Safety Report 14937461 (Version 2)
Quarter: 2018Q2

REPORT INFORMATION
  Report Type: Report from Study
  Country: CA (occurrence: CA)
  Receive Date: 20180525
  Receipt Date: 20180625
  Transmission Date: 20180711
  Serious: Yes (Hospitalization, Other)
  Sender: FDA-Public Use
  Company Number: CA-BRISTOL-MYERS SQUIBB COMPANY-BMS-2018-043043

PATIENT
  Age: 87 Year
  Sex: Female

DRUGS (1)
  1. ABATACEPT [Suspect]
     Active Substance: ABATACEPT
     Indication: RHEUMATOID ARTHRITIS
     Dosage: UNK
     Route: 042
     Dates: start: 20080826

REACTIONS (6)
  - Delirium [Recovered/Resolved]
  - Squamous cell carcinoma [Recovering/Resolving]
  - Urinary tract infection [Recovering/Resolving]
  - Cough [Not Recovered/Not Resolved]
  - Cellulitis [Recovering/Resolving]
  - Amnesia [Unknown]

NARRATIVE: CASE EVENT DATE: 20180418
